FAERS Safety Report 7597263-0 (Version None)
Quarter: 2011Q3

REPORT INFORMATION
  Report Type: 
  Country: None (occurrence: None)
  Receive Date: 20110708
  Receipt Date: 20110118
  Transmission Date: 20111222
  Serious: No
  Sender: FDA-Public Use
  Company Number: US-GLAXOSMITHKLINE-A0908417A

PATIENT

DRUGS (1)
  1. FLOVENT [Suspect]
     Route: 065

REACTIONS (2)
  - LATEX ALLERGY [None]
  - HYPERSENSITIVITY [None]
